FAERS Safety Report 7041810-4 (Version None)
Quarter: 2010Q4

REPORT INFORMATION
  Report Type: 
  Country: None (occurrence: None)
  Receive Date: 20101013
  Receipt Date: 20101004
  Transmission Date: 20110411
  Serious: Yes (Hospitalization, Other)
  Sender: FDA-Public Use
  Company Number: PHHY2010FR60632

PATIENT
  Sex: Female
  Weight: 40 kg

DRUGS (1)
  1. FORADIL [Suspect]
     Indication: ASTHMA
     Dosage: 1 DF, BID
     Route: 048

REACTIONS (9)
  - CHILLS [None]
  - DRUG TOXICITY [None]
  - HYPERGLYCAEMIA [None]
  - HYPERLACTACIDAEMIA [None]
  - HYPOKALAEMIA [None]
  - HYPOTENSION [None]
  - INCORRECT ROUTE OF DRUG ADMINISTRATION [None]
  - PALPITATIONS [None]
  - TACHYCARDIA [None]
